FAERS Safety Report 8053847-7 (Version None)
Quarter: 2012Q1

REPORT INFORMATION
  Report Type: 
  Country: None (occurrence: None)
  Receive Date: 20120118
  Receipt Date: 20120116
  Transmission Date: 20120608
  Serious: No
  Sender: FDA-Public Use
  Company Number: US-B.I. PHARMACEUTICALS,INC./RIDGEFIELD-2012-BP-00840BP

PATIENT
  Age: 64 Year
  Sex: Female

DRUGS (8)
  1. ATENOLOL [Concomitant]
     Dosage: 100 MG
     Route: 048
  2. AMARYL [Concomitant]
     Dosage: 0.5 MG
     Route: 048
  3. SYNTHROID [Concomitant]
     Dosage: 75 MCG
     Route: 048
  4. PROTONIX [Concomitant]
     Dosage: 40 MG
     Route: 048
  5. PRADAXA [Suspect]
     Indication: ATRIAL FIBRILLATION
     Dosage: 300 MG
     Route: 048
     Dates: start: 20110301
  6. ZANTAC [Concomitant]
     Dosage: 150 MG
     Route: 048
  7. LYRICA [Concomitant]
     Dosage: 50 MG
     Route: 048
  8. DIOVAN [Concomitant]
     Dosage: 160 MG
     Route: 048

REACTIONS (3)
  - SKIN LESION [None]
  - FALL [None]
  - MYALGIA [None]
